FAERS Safety Report 6558730-1 (Version None)
Quarter: 2010Q1

REPORT INFORMATION
  Report Type: 
  Country: None (occurrence: None)
  Receive Date: 20100129
  Receipt Date: 20100118
  Transmission Date: 20100710
  Serious: Yes (Other)
  Sender: FDA-Public Use
  Company Number: TR-PFIZER INC-2010007529

PATIENT
  Sex: Female

DRUGS (2)
  1. XANAX [Suspect]
     Dosage: 0.5 MG, UNK
     Route: 048
     Dates: start: 20090922, end: 20091101
  2. CIPRAM [Suspect]

REACTIONS (5)
  - ANXIETY [None]
  - FLUSHING [None]
  - INSOMNIA [None]
  - SUICIDAL IDEATION [None]
  - WITHDRAWAL SYNDROME [None]
